FAERS Safety Report 25943204 (Version 1)
Quarter: 2025Q4

REPORT INFORMATION
  Report Type: Spontaneous
  Country: US (occurrence: US)
  Receive Date: 20251021
  Receipt Date: 20251021
  Transmission Date: 20260117
  Serious: No
  Sender: EMD SERONO INC
  Company Number: US-Merck Healthcare KGaA-2025051202

PATIENT
  Age: 51 Year
  Sex: Female

DRUGS (1)
  1. MAVENCLAD [Suspect]
     Active Substance: CLADRIBINE
     Indication: Multiple sclerosis

REACTIONS (4)
  - Nausea [Unknown]
  - Fatigue [Unknown]
  - Headache [Unknown]
  - Dizziness [Unknown]
